FAERS Safety Report 12580957 (Version 1)
Quarter: 2016Q3

REPORT INFORMATION
  Report Type: Report from Study
  Country: US (occurrence: US)
  Receive Date: 20160721
  Receipt Date: 20160721
  Transmission Date: 20161109
  Serious: Yes (Hospitalization, Other)
  Sender: FDA-Public Use
  Company Number: US-ASTELLAS-2012US001046

PATIENT
  Age: 58 Year
  Sex: Male

DRUGS (2)
  1. ERLOTINIB [Suspect]
     Active Substance: ERLOTINIB
     Indication: PANCREATIC CARCINOMA
     Route: 048
     Dates: start: 20120109, end: 20120124
  2. VISMODEGIB [Suspect]
     Active Substance: VISMODEGIB
     Indication: ADENOCARCINOMA PANCREAS
     Route: 048
     Dates: start: 20120109, end: 20120124

REACTIONS (12)
  - Obstruction gastric [Unknown]
  - Escherichia sepsis [Unknown]
  - Urinary tract infection [Recovered/Resolved]
  - Urosepsis [Recovering/Resolving]
  - Perinephric abscess [Unknown]
  - Gastrointestinal haemorrhage [Unknown]
  - Abdominal pain [Unknown]
  - Obstruction gastric [Recovered/Resolved]
  - Renal neoplasm [Unknown]
  - Anaemia [Recovering/Resolving]
  - Neoplasm malignant [Unknown]
  - Small intestinal obstruction [Recovered/Resolved]

NARRATIVE: CASE EVENT DATE: 20120121
